FAERS Safety Report 25673601 (Version 4)
Quarter: 2025Q4

REPORT INFORMATION
  Report Type: Report from Study
  Country: US (occurrence: US)
  Receive Date: 20250813
  Receipt Date: 20251113
  Transmission Date: 20260117
  Serious: No
  Sender: ACADIA PHARMACEUTICALS
  Company Number: US-ACADIA PHARMACEUTICALS INC.-ACA-2025-TRF-009100

PATIENT
  Age: 13 Year
  Sex: Female
  Weight: 35.8 kg

DRUGS (6)
  1. DAYBUE [Suspect]
     Active Substance: TROFINETIDE
     Indication: Rett syndrome
     Dosage: 40 MILLILITER, BID
     Dates: start: 202403
  2. EPIDIOLEX [Concomitant]
     Active Substance: CANNABIDIOL
  3. ONFI [Concomitant]
     Active Substance: CLOBAZAM
     Dosage: UNK
  4. VIMPAT [Concomitant]
     Active Substance: LACOSAMIDE
  5. CLOBAZAM [Concomitant]
     Active Substance: CLOBAZAM
     Dosage: 7.5 MILLIGRAM, BID
  6. CLOBAZAM [Concomitant]
     Active Substance: CLOBAZAM
     Dosage: 7 MILLILITER, BID

REACTIONS (4)
  - Faeces soft [Not Recovered/Not Resolved]
  - Diarrhoea [Recovered/Resolved]
  - Diarrhoea [Not Recovered/Not Resolved]
  - Underdose [Not Recovered/Not Resolved]

NARRATIVE: CASE EVENT DATE: 20240401
